FAERS Safety Report 23752593 (Version 2)
Quarter: 2024Q2

REPORT INFORMATION
  Report Type: Spontaneous
  Country: EG (occurrence: EG)
  Receive Date: 20240417
  Receipt Date: 20240524
  Transmission Date: 20240716
  Serious: Yes (Other)
  Sender: FDA-Public Use
  Company Number: EG-SA-SAC20240416001020

PATIENT
  Age: 59 Year
  Sex: Male

DRUGS (7)
  1. ENOXAPARIN SODIUM [Suspect]
     Active Substance: ENOXAPARIN SODIUM
     Indication: Acute myocardial infarction
     Dosage: 60 MG, TOTAL(60 MG ONCE)
     Route: 058
     Dates: start: 20240217, end: 20240219
  2. CLOPIDOGREL BISULFATE [Suspect]
     Active Substance: CLOPIDOGREL BISULFATE
     Indication: Acute myocardial infarction
     Dosage: 300 MG, QD(300 MG THEN 75 MG ONCE DAILY
     Route: 048
     Dates: start: 20240217, end: 20240219
  3. CLOPIDOGREL BISULFATE [Suspect]
     Active Substance: CLOPIDOGREL BISULFATE
     Dosage: 75 MG, QD(300 MG THEN 75 MG ONCE DAILY)
     Route: 048
     Dates: end: 20240219
  4. TIROFIBAN HYDROCHLORIDE [Suspect]
     Active Substance: TIROFIBAN HYDROCHLORIDE
     Indication: Acute myocardial infarction
     Dosage: UNK( 12.5 MG/50ML )
     Route: 042
     Dates: start: 20240217, end: 20240219
  5. ASPIRIN [Suspect]
     Active Substance: ASPIRIN
     Indication: Acute myocardial infarction
     Dosage: 75 MG(300 MG THEN  75 MG ONCE DAILY)
     Route: 048
     Dates: start: 20240217
  6. ASPIRIN [Suspect]
     Active Substance: ASPIRIN
     Dosage: 300 MG (300 MG THEN 75 MG ONCE DAILY)
     Route: 048
  7. SODIUM CHLORIDE [Concomitant]
     Active Substance: SODIUM CHLORIDE
     Indication: Acute myocardial infarction
     Dosage: 250 ML(250 ML NORMAL SALINE AT RATE 8 ML/HR WITH A DOSE (400 MCG/HR))
     Dates: start: 20240217

REACTIONS (1)
  - Haematemesis [Recovered/Resolved]

NARRATIVE: CASE EVENT DATE: 20240219
